FAERS Safety Report 20304496 (Version 2)
Quarter: 2022Q1

REPORT INFORMATION
  Report Type: Spontaneous
  Country: US (occurrence: US)
  Receive Date: 20220106
  Receipt Date: 20220111
  Transmission Date: 20220423
  Serious: Yes (Hospitalization, Other)
  Sender: FDA-Public Use
  Company Number: US-BAYER-2021A275539

PATIENT
  Sex: Female

DRUGS (2)
  1. ADEMPAS [Suspect]
     Active Substance: RIOCIGUAT
  2. AMBRISENTAN [Concomitant]
     Active Substance: AMBRISENTAN

REACTIONS (13)
  - Oxygen saturation decreased [None]
  - Musculoskeletal chest pain [None]
  - Hospitalisation [None]
  - Mobility decreased [None]
  - Palpitations [None]
  - Feeling hot [None]
  - Illness [None]
  - Asthenia [None]
  - Palpitations [None]
  - Tachycardia [None]
  - Hypotension [None]
  - Tinnitus [None]
  - Fatigue [None]
